FAERS Safety Report 5668860-4 (Version None)
Quarter: 2008Q1

REPORT INFORMATION
  Report Type: 
  Country: None (occurrence: None)
  Receive Date: 20080317
  Receipt Date: 20071107
  Transmission Date: 20080703
  Serious: No
  Sender: FDA-Public Use
  Company Number: US-BAYER-US-2007-042389

PATIENT
  Age: 30 Year
  Sex: Female
  Weight: 63 kg

DRUGS (1)
  1. YAZ [Suspect]
     Indication: OVARIAN CYST
     Dates: start: 20071011

REACTIONS (3)
  - BREAST TENDERNESS [None]
  - HYPOAESTHESIA [None]
  - VAGINAL DISCHARGE [None]
